FAERS Safety Report 23343236 (Version 1)
Quarter: 2023Q4

REPORT INFORMATION
  Report Type: Spontaneous
  Country: US (occurrence: US)
  Receive Date: 20231227
  Receipt Date: 20231227
  Transmission Date: 20240110
  Serious: No
  Sender: FDA-Public Use
  Company Number: US-UPSHER-SMITH LABORATORIES, LLC-2023USL00117

PATIENT
  Sex: Male

DRUGS (3)
  1. KLOR-CON M [Suspect]
     Active Substance: POTASSIUM CHLORIDE
     Indication: Blood potassium decreased
     Dosage: 20 MEQ, 2X/DAY, MORNING AND EVENING
     Route: 048
  2. KLOR-CON M [Suspect]
     Active Substance: POTASSIUM CHLORIDE
     Indication: Diuretic therapy
  3. OTHER PILLS [Concomitant]

REACTIONS (3)
  - Foreign body in throat [Not Recovered/Not Resolved]
  - Oropharyngeal discomfort [Not Recovered/Not Resolved]
  - Product use complaint [Unknown]
